FAERS Safety Report 19430320 (Version 1)
Quarter: 2021Q2

REPORT INFORMATION
  Report Type: Spontaneous
  Country: US (occurrence: US)
  Receive Date: 20210617
  Receipt Date: 20210617
  Transmission Date: 20210717
  Serious: No
  Sender: FDA-Public Use
  Company Number: US-ACCORD-197621

PATIENT
  Sex: Female

DRUGS (1)
  1. CAPECITABINE. [Suspect]
     Active Substance: CAPECITABINE
     Indication: BREAST CANCER
     Dosage: DESCRIBED AS PINK, OVAL, WITH 500 ON IT,4 TIMES DAILY
     Route: 048

REACTIONS (4)
  - Urticaria [Not Recovered/Not Resolved]
  - Nail discolouration [Not Recovered/Not Resolved]
  - Palmar-plantar erythrodysaesthesia syndrome [Not Recovered/Not Resolved]
  - Nail disorder [Not Recovered/Not Resolved]
